FAERS Safety Report 10524635 (Version 1)
Quarter: 2014Q4

REPORT INFORMATION
  Report Type: Spontaneous
  Country: US (occurrence: None)
  Receive Date: 20141015
  Receipt Date: 20141015
  Transmission Date: 20150528
  Serious: Yes (Hospitalization)
  Sender: FDA-Public Use
  Company Number: None

PATIENT
  Age: 40 Year
  Sex: Female
  Weight: 57.3 kg

DRUGS (1)
  1. ONCASPAR [Suspect]
     Active Substance: PEGASPARGASE
     Dates: end: 20140908

REACTIONS (9)
  - Oesophagitis [None]
  - Dyspnoea [None]
  - Pleural effusion [None]
  - Retching [None]
  - Wheezing [None]
  - Nausea [None]
  - Vomiting [None]
  - Pancreatitis [None]
  - Aspiration pleural cavity abnormal [None]

NARRATIVE: CASE EVENT DATE: 20141001
